FAERS Safety Report 12774446 (Version 2)
Quarter: 2016Q4

REPORT INFORMATION
  Report Type: Spontaneous
  Country: US (occurrence: US)
  Receive Date: 20160923
  Receipt Date: 20161026
  Transmission Date: 20170207
  Serious: No
  Sender: FDA-Public Use
  Company Number: US-PFIZER INC-2016439313

PATIENT
  Sex: Female

DRUGS (1)
  1. NORPACE [Suspect]
     Active Substance: DISOPYRAMIDE PHOSPHATE
     Dosage: 150 MG, 2X/DAY

REACTIONS (5)
  - Drug dispensing error [Unknown]
  - Stress [Unknown]
  - Fatigue [Unknown]
  - Chest pain [Unknown]
  - Heart rate increased [Unknown]
